FAERS Safety Report 16799385 (Version 1)
Quarter: 2019Q3

REPORT INFORMATION
  Report Type: Spontaneous
  Country: US (occurrence: US)
  Receive Date: 20190912
  Receipt Date: 20190912
  Transmission Date: 20191005
  Serious: No
  Sender: FDA-Public Use
  Company Number: US-009507513-1909USA004180

PATIENT
  Sex: Female

DRUGS (1)
  1. PREGNYL [Suspect]
     Active Substance: CHORIOGONADOTROPIN ALFA
     Indication: INFERTILITY FEMALE
     Dosage: 10000 UNITS ONCE FOR 1 DOSE
     Route: 058
     Dates: start: 20190814

REACTIONS (6)
  - Feeling abnormal [Unknown]
  - Sleep disorder [Unknown]
  - Fatigue [Unknown]
  - Nausea [Unknown]
  - Injection site reaction [Unknown]
  - Headache [Unknown]
